FAERS Safety Report 7543814-1 (Version None)
Quarter: 2011Q2

REPORT INFORMATION
  Report Type: 
  Country: None (occurrence: None)
  Receive Date: 20110613
  Receipt Date: 20110602
  Transmission Date: 20111010
  Serious: Yes (Hospitalization)
  Sender: FDA-Public Use
  Company Number: US-ASTRAZENECA-2011SE34104

PATIENT
  Age: 81 Year
  Sex: Female

DRUGS (10)
  1. LIPITOR [Concomitant]
  2. ACTOS [Concomitant]
  3. PLAVIX [Concomitant]
  4. LEVOTHYROXINE SODIUM [Concomitant]
  5. BROVANA [Concomitant]
  6. TRAZEDONE [Concomitant]
  7. NEXIUM [Suspect]
     Indication: GASTROOESOPHAGEAL REFLUX DISEASE
     Route: 048
     Dates: start: 20090101, end: 20110501
  8. BUDESONIDE [Concomitant]
     Indication: CHRONIC OBSTRUCTIVE PULMONARY DISEASE
     Route: 055
  9. AMLODIPINE [Concomitant]
  10. ISOSORBIDE MONONITRATE [Concomitant]

REACTIONS (4)
  - DRUG DOSE OMISSION [None]
  - GASTROOESOPHAGEAL REFLUX DISEASE [None]
  - PNEUMONIA [None]
  - ABDOMINAL DISCOMFORT [None]
